FAERS Safety Report 17638612 (Version 2)
Quarter: 2020Q2

REPORT INFORMATION
  Report Type: Spontaneous
  Country: PH (occurrence: PH)
  Receive Date: 20200407
  Receipt Date: 20200608
  Transmission Date: 20200713
  Serious: Yes (Death, Other)
  Sender: FDA-Public Use
  Company Number: PH-ROCHE-2573631

PATIENT
  Age: 73 Year
  Sex: Female

DRUGS (2)
  1. HERCEPTIN [Suspect]
     Active Substance: TRASTUZUMAB
     Indication: ADJUVANT THERAPY
     Route: 065
  2. PERJETA [Suspect]
     Active Substance: PERTUZUMAB
     Indication: ADJUVANT THERAPY
     Route: 065

REACTIONS (2)
  - Death [Fatal]
  - Metastases to bone [Unknown]
